FAERS Safety Report 10771455 (Version 3)
Quarter: 2015Q1

REPORT INFORMATION
  Report Type: Report from Study
  Country: FR (occurrence: FR)
  Receive Date: 20150206
  Receipt Date: 20150302
  Transmission Date: 20150721
  Serious: Yes (Other)
  Sender: FDA-Public Use
  Company Number: FR-GLAXOSMITHKLINE-FR2015GSK015097

PATIENT
  Age: 39 Year
  Sex: Female
  Weight: 100 kg

DRUGS (8)
  1. COLECALCIFEROL [Concomitant]
     Active Substance: CHOLECALCIFEROL
     Dosage: UNK
     Dates: start: 20120317
  2. RITONAVIR. [Suspect]
     Active Substance: RITONAVIR
  3. ATAZANAVIR [Suspect]
     Active Substance: ATAZANAVIR
  4. EVIPLERA [Suspect]
     Active Substance: EMTRICITABINE\RILPIVIRINE\TENOFOVIR DISOPROXIL FUMARATE
     Indication: HIV INFECTION
     Dosage: UNK
     Route: 048
     Dates: start: 20130104, end: 20140612
  5. URBANYL [Concomitant]
     Active Substance: CLOBAZAM
     Dosage: UNK
     Dates: start: 20140217
  6. ABACAVIR SULFATE + LAMIVUDINE [Suspect]
     Active Substance: ABACAVIR SULFATE\LAMIVUDINE
  7. COSOPT [Concomitant]
     Active Substance: DORZOLAMIDE HYDROCHLORIDE\TIMOLOL MALEATE
  8. FLUOXETINE [Concomitant]
     Active Substance: FLUOXETINE\FLUOXETINE HYDROCHLORIDE
     Dosage: UNK
     Dates: start: 20140217

REACTIONS (1)
  - Abortion spontaneous [Recovered/Resolved]

NARRATIVE: CASE EVENT DATE: 201406
